FAERS Safety Report 7085396-7 (Version None)
Quarter: 2010Q4

REPORT INFORMATION
  Report Type: 
  Country: None (occurrence: None)
  Receive Date: 20101105
  Receipt Date: 20101103
  Transmission Date: 20110411
  Serious: Yes (Other)
  Sender: FDA-Public Use
  Company Number: DE-PFIZER INC-2010075193

PATIENT
  Age: 71 Year
  Sex: Male
  Weight: 74 kg

DRUGS (11)
  1. BLINDED *NO SUBJECT DRUG [Suspect]
     Indication: PROSTATE CANCER
     Dosage: UNK
     Route: 048
     Dates: start: 20100126, end: 20100613
  2. PLACEBO [Suspect]
     Indication: PROSTATE CANCER
     Dosage: UNK
     Route: 048
     Dates: start: 20100126, end: 20100613
  3. SUNITINIB MALATE [Suspect]
     Indication: PROSTATE CANCER
     Dosage: UNK
     Route: 048
     Dates: start: 20100126, end: 20100613
  4. PREDNISONE [Suspect]
     Indication: PROSTATE CANCER
     Dosage: 5 MG, 2X/DAY
     Route: 048
     Dates: start: 20100126
  5. FLUMETASON PIVALATE/TRICLOSAN [Concomitant]
     Indication: PALMAR-PLANTAR ERYTHRODYSAESTHESIA SYNDROME
     Dosage: UNK
     Dates: start: 20100223
  6. MERIDOL [Concomitant]
     Indication: MUCOSAL INFLAMMATION
     Dosage: UNK
     Dates: start: 20100601
  7. CEFASEL [Concomitant]
     Indication: PROSTATE CANCER
     Dosage: UNK
     Dates: start: 20091115
  8. ZINC OROTATE [Concomitant]
     Indication: PROSTATE CANCER
     Dosage: UNK
     Dates: start: 20061115
  9. TAXOFIT [Concomitant]
     Indication: PROSTATE CANCER
     Dosage: UNK
     Dates: start: 20091115
  10. DELIX [Concomitant]
     Indication: HYPERTENSION
     Dosage: UNK
     Dates: start: 20100209
  11. ZOLEDRONIC ACID [Concomitant]
     Indication: METASTASES TO BONE
     Dosage: UNK

REACTIONS (1)
  - NECROSIS [None]
